FAERS Safety Report 16949808 (Version 1)
Quarter: 2019Q4

REPORT INFORMATION
  Report Type: Report from Study
  Country: US (occurrence: US)
  Receive Date: 20191023
  Receipt Date: 20191023
  Transmission Date: 20200122
  Serious: Yes (Other)
  Sender: FDA-Public Use
  Company Number: US-ROCHE-2343886

PATIENT
  Age: 63 Year
  Sex: Female

DRUGS (1)
  1. RITUXAN [Suspect]
     Active Substance: RITUXIMAB
     Indication: WALDENSTROM^S MACROGLOBULINAEMIA
     Dosage: ONGOING; UNKNOWN
     Route: 042
     Dates: start: 20190422

REACTIONS (6)
  - Off label use [Unknown]
  - Influenza like illness [Unknown]
  - Intentional product use issue [Unknown]
  - Oropharyngeal pain [Not Recovered/Not Resolved]
  - Tremor [Recovered/Resolved]
  - Pyrexia [Recovered/Resolved]

NARRATIVE: CASE EVENT DATE: 20190422
